FAERS Safety Report 21626674 (Version 1)
Quarter: 2022Q4

REPORT INFORMATION
  Report Type: Spontaneous
  Country: BR (occurrence: BR)
  Receive Date: 20221122
  Receipt Date: 20221122
  Transmission Date: 20230113
  Serious: Yes (Hospitalization, Other)
  Sender: FDA-Public Use
  Company Number: BR-NOVOPROD-859633

PATIENT
  Age: 4 Year
  Sex: Female
  Weight: 17.6 kg

DRUGS (4)
  1. FIASP [Suspect]
     Active Substance: INSULIN ASPART
     Indication: Type 1 diabetes mellitus
     Dosage: 1UI:30G
  2. FIASP [Suspect]
     Active Substance: INSULIN ASPART
     Dosage: 1 IU FOR 15 G
  3. TRESIBA [Suspect]
     Active Substance: INSULIN DEGLUDEC
     Indication: Type 1 diabetes mellitus
     Dosage: 5 IU, QD
  4. TRESIBA [Suspect]
     Active Substance: INSULIN DEGLUDEC
     Dosage: 9 IU, QD (MORNING)

REACTIONS (4)
  - Appendicectomy [Unknown]
  - Lipids abnormal [Unknown]
  - Hyperglycaemia [Unknown]
  - Hypoglycaemia [Unknown]

NARRATIVE: CASE EVENT DATE: 20221026
